FAERS Safety Report 21933035 (Version 1)
Quarter: 2023Q1

REPORT INFORMATION
  Report Type: Spontaneous
  Country: CH (occurrence: CH)
  Receive Date: 20230131
  Receipt Date: 20230131
  Transmission Date: 20230418
  Serious: Yes (Other)
  Sender: FDA-Public Use
  Company Number: CH-UCBSA-2023004692

PATIENT
  Age: 55 Year
  Sex: Male

DRUGS (1)
  1. BRIVIACT [Suspect]
     Active Substance: BRIVARACETAM
     Indication: Partial seizures
     Dosage: UNK

REACTIONS (6)
  - Seizure [Unknown]
  - Dizziness [Unknown]
  - Balance disorder [Unknown]
  - Injury [Unknown]
  - Fall [Unknown]
  - Therapy interrupted [Unknown]
